FAERS Safety Report 22184448 (Version 2)
Quarter: 2023Q2

REPORT INFORMATION
  Report Type: Spontaneous
  Country: CN (occurrence: CN)
  Receive Date: 20230407
  Receipt Date: 20230412
  Transmission Date: 20230721
  Serious: Yes (Hospitalization)
  Sender: FDA-Public Use
  Company Number: CN-002147023-NVSC2023CN076102

PATIENT
  Age: 64 Year
  Sex: Male
  Weight: 70 kg

DRUGS (2)
  1. GLIVEC [Suspect]
     Active Substance: IMATINIB MESYLATE
     Indication: Gastrointestinal stromal tumour
     Dosage: 400 MG, BID (AT A TIME)
     Route: 048
     Dates: start: 20221215
  2. GLIVEC [Suspect]
     Active Substance: IMATINIB MESYLATE
     Dosage: UNK
     Route: 065
     Dates: start: 202301, end: 20230215

REACTIONS (8)
  - Mouth ulceration [Recovered/Resolved]
  - Oedema [Recovered/Resolved]
  - Drug eruption [Unknown]
  - Pruritus [Unknown]
  - Rash [Recovered/Resolved]
  - Erythema [Unknown]
  - Coronavirus infection [Unknown]
  - Peripheral swelling [Unknown]

NARRATIVE: CASE EVENT DATE: 20221216
